FAERS Safety Report 7329450-0 (Version None)
Quarter: 2011Q1

REPORT INFORMATION
  Report Type: 
  Country: None (occurrence: None)
  Receive Date: 20110225
  Receipt Date: 20110225
  Transmission Date: 20110831
  Serious: No
  Sender: FDA-Public Use
  Company Number: None

PATIENT
  Age: 43 Year
  Sex: Male
  Weight: 74.8435 kg

DRUGS (2)
  1. ZOLOFT [Suspect]
     Indication: DEPRESSION
     Dates: start: 20040601, end: 20101201
  2. ZOLOFT [Suspect]
     Indication: ANXIETY
     Dates: start: 20040601, end: 20101201

REACTIONS (6)
  - PREMATURE EJACULATION [None]
  - DIZZINESS [None]
  - SEXUAL DYSFUNCTION [None]
  - NERVOUSNESS [None]
  - FEELING ABNORMAL [None]
  - PARAESTHESIA [None]
